FAERS Safety Report 22350784 (Version 1)
Quarter: 2023Q2

REPORT INFORMATION
  Report Type: Report from Study
  Country: US (occurrence: US)
  Receive Date: 20230522
  Receipt Date: 20230522
  Transmission Date: 20230722
  Serious: Yes (Other)
  Sender: FDA-Public Use
  Company Number: US-MYLANLABS-2023M1051756

PATIENT
  Age: 61 Year
  Sex: Male

DRUGS (8)
  1. HEPARIN [Suspect]
     Active Substance: HEPARIN SODIUM
     Indication: Pemphigus
     Dosage: UNK (DROPS)
     Route: 065
  2. HEPARIN [Suspect]
     Active Substance: HEPARIN SODIUM
     Indication: Noninfective conjunctivitis
  3. IMMUNE GLOBULIN NOS [Suspect]
     Active Substance: IMMUNE GLOBULIN NOS
     Indication: Pemphigus
     Dosage: UNK, TID (POOLED IMMUNE-GLOBULIN THREE TIMES A DAY)
     Route: 065
     Dates: start: 20191004
  4. IMMUNE GLOBULIN NOS [Suspect]
     Active Substance: IMMUNE GLOBULIN NOS
     Indication: Noninfective conjunctivitis
  5. LOTEPREDNOL ETABONATE [Suspect]
     Active Substance: LOTEPREDNOL ETABONATE
     Indication: Pemphigus
     Dosage: UNK, BID
     Route: 065
     Dates: start: 201910
  6. LOTEPREDNOL ETABONATE [Suspect]
     Active Substance: LOTEPREDNOL ETABONATE
     Indication: Noninfective conjunctivitis
  7. METHYLPREDNISOLONE [Suspect]
     Active Substance: METHYLPREDNISOLONE
     Indication: Pemphigus
     Dosage: UNK, 6XD
     Route: 065
     Dates: start: 2019
  8. METHYLPREDNISOLONE [Suspect]
     Active Substance: METHYLPREDNISOLONE
     Indication: Noninfective conjunctivitis
     Dosage: UNK, QID (TAPERED TO FOUR TIMES A DAY TWO WEEKS LATER)
     Route: 065
     Dates: start: 2019

REACTIONS (2)
  - Drug ineffective for unapproved indication [Unknown]
  - Off label use [Unknown]
